FAERS Safety Report 14196185 (Version 1)
Quarter: 2017Q4

REPORT INFORMATION
  Report Type: Spontaneous
  Country: US (occurrence: US)
  Receive Date: 20171116
  Receipt Date: 20171116
  Transmission Date: 20180321
  Serious: No
  Sender: FDA-Public Use
  Company Number: US-BAUSCH-BL-2017-025576

PATIENT
  Sex: Male

DRUGS (5)
  1. XENAZINE [Suspect]
     Active Substance: TETRABENAZINE
     Indication: TARDIVE DYSKINESIA
     Dosage: ONCE AT BEDTIME
     Route: 048
     Dates: start: 2017
  2. XENAZINE [Suspect]
     Active Substance: TETRABENAZINE
     Dosage: RETITRATED THE DOSE OF XENAZINE
     Route: 048
     Dates: start: 2017
  3. XENAZINE [Suspect]
     Active Substance: TETRABENAZINE
     Route: 048
     Dates: start: 2017
  4. XENAZINE [Suspect]
     Active Substance: TETRABENAZINE
     Dosage: FOR ONE WEEK
     Route: 048
     Dates: start: 2017
  5. XENAZINE [Suspect]
     Active Substance: TETRABENAZINE
     Route: 048
     Dates: start: 2017

REACTIONS (4)
  - Off label use [Not Recovered/Not Resolved]
  - Prescribed overdose [Unknown]
  - No adverse event [Unknown]
  - Drug titration error [Not Recovered/Not Resolved]

NARRATIVE: CASE EVENT DATE: 2017
